FAERS Safety Report 8615048 (Version 4)
Quarter: 2012Q4

REPORT INFORMATION
  Report Type: 
  Country: US (occurrence: US)
  Receive Date: 20120614
  Receipt Date: 20121102
  Transmission Date: 20130627
  Serious: Yes (Hospitalization, Other)
  Sender: FDA-Public Use
  Company Number: US-009507513-1206USA00881

PATIENT

DRUGS (6)
  1. FOSAMAX [Suspect]
     Indication: OSTEOPOROSIS
     Dosage: 70 mg, qw
     Route: 048
     Dates: start: 1998, end: 20100510
  2. FOSAMAX [Suspect]
     Dosage: 70 mg, qd
     Route: 048
  3. ACTONEL [Suspect]
     Dosage: 35 mg
     Route: 048
     Dates: start: 2010, end: 201007
  4. PREMARIN [Concomitant]
     Indication: BLOOD OESTROGEN ABNORMAL
     Dosage: UNK
     Dates: start: 1968, end: 2010
  5. OS-CAL (CALCITRIOL) [Concomitant]
     Dosage: 1000 mg, qd
     Dates: start: 1992
  6. VITAMIN D (UNSPECIFIED) [Concomitant]
     Dosage: 50 Microgram, qd

REACTIONS (42)
  - Femur fracture [Unknown]
  - Fall [Unknown]
  - Intramedullary rod insertion [Unknown]
  - Bone scan [Unknown]
  - Bone scan [Unknown]
  - Vitamin D deficiency [Unknown]
  - Calcium deficiency [Unknown]
  - Gastrooesophageal reflux disease [Unknown]
  - Hypercholesterolaemia [Unknown]
  - Hypokalaemia [Recovered/Resolved]
  - Haemoglobin decreased [Recovered/Resolved]
  - Packed red blood cell transfusion [Recovering/Resolving]
  - Escherichia urinary tract infection [Unknown]
  - Overdose [Unknown]
  - Hypoaesthesia [Unknown]
  - Myalgia [Unknown]
  - Nausea [Unknown]
  - Vomiting [Unknown]
  - Urinary tract infection [Not Recovered/Not Resolved]
  - Urinary tract infection [Unknown]
  - Osteoarthritis [Unknown]
  - Pharyngitis [Unknown]
  - Sinusitis [Unknown]
  - Diarrhoea [Unknown]
  - Back pain [Unknown]
  - Cataract operation [Unknown]
  - Muscular weakness [Unknown]
  - Vertigo [Unknown]
  - Cystopexy [Unknown]
  - Blood pressure increased [Unknown]
  - Depression [Unknown]
  - Joint arthroplasty [Unknown]
  - Hyperlipidaemia [Unknown]
  - Anxiety [Unknown]
  - Rhinitis allergic [Unknown]
  - Inappropriate schedule of drug administration [Unknown]
  - Arthropathy [Unknown]
  - Myalgia [Unknown]
  - Stress urinary incontinence [Unknown]
  - Atrophy [Unknown]
  - Foot deformity [Not Recovered/Not Resolved]
  - Restless legs syndrome [Unknown]
